FAERS Safety Report 16312793 (Version 2)
Quarter: 2019Q2

REPORT INFORMATION
  Report Type: Spontaneous
  Country: CZ (occurrence: CZ)
  Receive Date: 20190515
  Receipt Date: 20190619
  Transmission Date: 20190711
  Serious: Yes (Other)
  Sender: FDA-Public Use
  Company Number: CZ-SUN PHARMACEUTICAL INDUSTRIES LTD-2019RR-207735

PATIENT
  Age: 58 Year
  Sex: Female

DRUGS (7)
  1. DEXAMETHASONE. [Suspect]
     Active Substance: DEXAMETHASONE
     Dosage: 9 CYCLES
     Route: 065
     Dates: end: 201206
  2. CYCLOPHOSPHAMIDE. [Suspect]
     Active Substance: CYCLOPHOSPHAMIDE
     Dosage: 9 CYCLES
     Route: 065
     Dates: end: 201206
  3. BORTEZOMIB. [Suspect]
     Active Substance: BORTEZOMIB
     Dosage: 1.0 MILLIGRAM/SQ. METER, 3DOSE/MONTH
     Route: 065
  4. CYCLOPHOSPHAMIDE. [Suspect]
     Active Substance: CYCLOPHOSPHAMIDE
     Indication: PLASMA CELL MYELOMA
     Dosage: 3 CYCLES
     Route: 065
  5. BORTEZOMIB. [Suspect]
     Active Substance: BORTEZOMIB
     Indication: PLASMA CELL MYELOMA
     Dosage: 1.3 MILLIGRAM/SQ. METER, WEEKLY
     Route: 065
  6. CYCLOPHOSPHAMIDE. [Suspect]
     Active Substance: CYCLOPHOSPHAMIDE
     Dosage: 8 CYCLES
     Route: 065
  7. DEXAMETHASONE. [Suspect]
     Active Substance: DEXAMETHASONE
     Indication: PLASMA CELL MYELOMA
     Dosage: 3 CYCLES
     Route: 065

REACTIONS (4)
  - Polyneuropathy [Unknown]
  - Suicidal ideation [Unknown]
  - Toxicity to various agents [Unknown]
  - Depression [Unknown]
